FAERS Safety Report 4716951-4 (Version None)
Quarter: 2005Q3

REPORT INFORMATION
  Report Type: 
  Country: None (occurrence: None)
  Receive Date: 20050712
  Receipt Date: 20041228
  Transmission Date: 20060218
  Serious: Yes (Hospitalization)
  Sender: FDA-Public Use
  Company Number: PHEH2004US13722

PATIENT

DRUGS (2)
  1. GLEEVEC [Suspect]
     Dates: start: 20041007, end: 20041228
  2. LISINOPRIL [Concomitant]

REACTIONS (1)
  - ANGIONEUROTIC OEDEMA [None]
